FAERS Safety Report 21381383 (Version 1)
Quarter: 2022Q3

REPORT INFORMATION
  Report Type: Spontaneous
  Country: US (occurrence: None)
  Receive Date: 20220926
  Receipt Date: 20220926
  Transmission Date: 20221027
  Serious: Yes (Death, Life-Threatening)
  Sender: FDA-Public Use
  Company Number: None

PATIENT
  Age: 68 Year
  Sex: Male
  Weight: 97.2 kg

DRUGS (1)
  1. SUGAMMADEX [Suspect]
     Active Substance: SUGAMMADEX
     Indication: Neuromuscular blockade reversal
     Route: 040
     Dates: start: 20220922, end: 20220922

REACTIONS (8)
  - Hypotension [None]
  - Pulse absent [None]
  - Cardiac arrest [None]
  - Unresponsive to stimuli [None]
  - Shock [None]
  - Anaphylactic reaction [None]
  - Product use issue [None]
  - Hypersensitivity [None]

NARRATIVE: CASE EVENT DATE: 20220922
